FAERS Safety Report 10091553 (Version 3)
Quarter: 2015Q3

REPORT INFORMATION
  Report Type: Spontaneous
  Country: US (occurrence: US)
  Receive Date: 20140421
  Receipt Date: 20150813
  Transmission Date: 20151125
  Serious: No
  Sender: FDA-Public Use
  Company Number: US-GILEAD-2013-0068160

PATIENT
  Age: 75 Year
  Sex: Female

DRUGS (3)
  1. LETAIRIS [Suspect]
     Active Substance: AMBRISENTAN
     Dates: start: 20090313
  2. LETAIRIS [Suspect]
     Active Substance: AMBRISENTAN
     Indication: COR PULMONALE CHRONIC
     Dosage: 5 MG, UNK
     Route: 048
     Dates: start: 20090312
  3. VENTAVIS [Concomitant]
     Active Substance: ILOPROST

REACTIONS (4)
  - Dyspnoea exertional [Unknown]
  - Upper respiratory tract infection [Unknown]
  - Respiratory tract infection [Unknown]
  - Malaise [Unknown]
